FAERS Safety Report 5269434-X (Version None)
Quarter: 2007Q1

REPORT INFORMATION
  Report Type: 
  Country: None (occurrence: None)
  Receive Date: 20070316
  Receipt Date: 20070316
  Transmission Date: 20070707
  Serious: Yes (Other)
  Sender: FDA-Public Use
  Company Number: None

PATIENT
  Sex: Female

DRUGS (1)
  1. POLYETHYLEN GLYCOL, 3350 NF [Suspect]
     Indication: CONSTIPATION
     Dosage: 17 GRAMS DAILY DOSE ORAL 047
     Route: 048
     Dates: start: 20070220

REACTIONS (4)
  - DRUG INEFFECTIVE [None]
  - DYSGEUSIA [None]
  - PAIN [None]
  - PHARMACEUTICAL PRODUCT COMPLAINT [None]
